FAERS Safety Report 4337195-4 (Version None)
Quarter: 2004Q2

REPORT INFORMATION
  Report Type: 
  Country: None (occurrence: None)
  Receive Date: 20040407
  Receipt Date: 20040323
  Transmission Date: 20050107
  Serious: Yes (Hospitalization, Other)
  Sender: FDA-Public Use
  Company Number: M04-INT-013

PATIENT
  Age: 77 Year
  Sex: Female

DRUGS (4)
  1. INTEGRILIN [Suspect]
     Indication: STENT PLACEMENT
     Dosage: 2 MCG/KG/MIN: INTRAVENOUS DRIP
     Route: 041
     Dates: start: 20040127, end: 20040128
  2. ASPIRIN [Concomitant]
  3. HEPARIN [Concomitant]
  4. PLAVIX [Concomitant]

REACTIONS (8)
  - FALL [None]
  - HAEMATOCRIT DECREASED [None]
  - HAEMOGLOBIN DECREASED [None]
  - HEADACHE [None]
  - HYPERSENSITIVITY [None]
  - NAUSEA [None]
  - RASH GENERALISED [None]
  - THROMBOCYTOPENIA [None]
